FAERS Safety Report 25188295 (Version 1)
Quarter: 2025Q2

REPORT INFORMATION
  Report Type: Spontaneous
  Country: IT (occurrence: IT)
  Receive Date: 20250411
  Receipt Date: 20250411
  Transmission Date: 20250716
  Serious: Yes (Other)
  Sender: RANBAXY
  Company Number: IT-MINISAL02-1024005

PATIENT
  Age: 49 Year
  Sex: Male

DRUGS (1)
  1. BOSENTAN [Suspect]
     Active Substance: BOSENTAN
     Indication: Skin ulcer
     Route: 048
     Dates: start: 20250119, end: 20250129

REACTIONS (1)
  - Erectile dysfunction [Unknown]

NARRATIVE: CASE EVENT DATE: 20250120
